FAERS Safety Report 14630282 (Version 1)
Quarter: 2018Q1

REPORT INFORMATION
  Report Type: Spontaneous
  Country: ES (occurrence: ES)
  Receive Date: 20180313
  Receipt Date: 20180313
  Transmission Date: 20180509
  Serious: Yes (Hospitalization, Other)
  Sender: FDA-Public Use
  Company Number: ES-VISTAPHARM, INC.-VER201712-001475

PATIENT
  Age: 48 Year
  Sex: Female

DRUGS (2)
  1. OLANZAPINE. [Suspect]
     Active Substance: OLANZAPINE
     Indication: SUICIDE ATTEMPT
  2. VALPROIC ACID. [Suspect]
     Active Substance: VALPROIC ACID
     Indication: SUICIDE ATTEMPT
     Dosage: TABLET

REACTIONS (10)
  - Dysarthria [Unknown]
  - Hypokalaemia [Recovering/Resolving]
  - Somnolence [Unknown]
  - Hyperammonaemia [Recovered/Resolved]
  - Suicide attempt [Unknown]
  - Thrombocytopenia [Unknown]
  - Blood lactic acid increased [Recovered/Resolved]
  - Depressed level of consciousness [Unknown]
  - Toxicity to various agents [Unknown]
  - Hypocalcaemia [Unknown]
